FAERS Safety Report 23861786 (Version 1)
Quarter: 2024Q2

REPORT INFORMATION
  Report Type: Spontaneous
  Country: US (occurrence: US)
  Receive Date: 20240516
  Receipt Date: 20240516
  Transmission Date: 20240716
  Serious: No
  Sender: FDA-Public Use
  Company Number: US-AJANTA-2023AJA00229

PATIENT

DRUGS (1)
  1. CHOLESTYRAMINE [Suspect]
     Active Substance: CHOLESTYRAMINE
     Indication: Irritable bowel syndrome
     Dosage: 8-10 PACKETS
     Route: 048
     Dates: start: 202308, end: 202309

REACTIONS (6)
  - Cough [Recovered/Resolved]
  - Nausea [Recovered/Resolved]
  - Product use complaint [Unknown]
  - Product solubility abnormal [Unknown]
  - Product use in unapproved indication [Unknown]
  - Product physical consistency issue [Unknown]

NARRATIVE: CASE EVENT DATE: 20230801
